FAERS Safety Report 15064972 (Version 1)
Quarter: 2018Q2

REPORT INFORMATION
  Report Type: Report from Study
  Country: LV (occurrence: LV)
  Receive Date: 20180626
  Receipt Date: 20180626
  Transmission Date: 20180711
  Serious: Yes (Life-Threatening, Hospitalization)
  Sender: FDA-Public Use
  Company Number: LV-ROCHE-2131239

PATIENT
  Age: 63 Year
  Sex: Male
  Weight: 63.7 kg

DRUGS (28)
  1. CARBOPLATIN. [Suspect]
     Active Substance: CARBOPLATIN
     Dosage: DAY 1 OF EACH 21-DAY CYCLE USING THE CALVERT FORMULA WITH A TARGET AUC = 5 MILLIGRAMS PER MILLILITER
     Route: 065
     Dates: start: 20180227
  2. DICLOFENACUM [Concomitant]
     Route: 048
     Dates: start: 20180216
  3. OMEPRAZOLUM [Concomitant]
     Route: 048
     Dates: start: 20180212
  4. METOCLOPRAMIDE. [Concomitant]
     Active Substance: METOCLOPRAMIDE
     Route: 048
     Dates: start: 20180209, end: 20180214
  5. ATEZOLIZUMAB. [Suspect]
     Active Substance: ATEZOLIZUMAB
     Route: 042
     Dates: start: 20180523
  6. BLINDED ETOPOSIDE [Suspect]
     Active Substance: ETOPOSIDE
     Route: 042
     Dates: start: 20180413
  7. DICLOFENACUM [Concomitant]
     Route: 048
     Dates: start: 20171120, end: 20180129
  8. DICLOFENACUM [Concomitant]
     Route: 048
     Dates: start: 20180130
  9. ALLOPURINOL. [Concomitant]
     Active Substance: ALLOPURINOL
     Route: 048
     Dates: start: 20180213
  10. TELMISARTAN. [Concomitant]
     Active Substance: TELMISARTAN
     Route: 048
     Dates: start: 20180528
  11. ATEZOLIZUMAB. [Suspect]
     Active Substance: ATEZOLIZUMAB
     Indication: SMALL CELL LUNG CANCER
     Dosage: ATEZOLIZUMAB 1200 MG WILL BE ADMINISTERED AS AN IV ON DAY 1 OF EACH 21-DAY CYCLE.?27/FEB/2018 TO 03/
     Route: 042
     Dates: start: 20180206
  12. CARBOPLATIN. [Suspect]
     Active Substance: CARBOPLATIN
     Dosage: DAY 1 OF EACH 21-DAY CYCLE USING THE CALVERT FORMULA WITH A TARGET AUC = 5 MILLIGRAMS PER MILLILITER
     Route: 065
     Dates: start: 20180411
  13. BLINDED ETOPOSIDE [Suspect]
     Active Substance: ETOPOSIDE
     Indication: SMALL CELL LUNG CANCER
     Dosage: ETOPOSIDE 100 MG/M2 WILL BE ADMINISTERED IV DAILY ON DAYS 1, 2, AND 3 OF EACH 21-DAY CYCLE.?06/FEB/2
     Route: 042
     Dates: start: 20180206
  14. METOCLOPRAMIDE. [Concomitant]
     Active Substance: METOCLOPRAMIDE
     Route: 048
     Dates: start: 20170122, end: 20180205
  15. CARBOPLATIN. [Suspect]
     Active Substance: CARBOPLATIN
     Indication: SMALL CELL LUNG CANCER
     Dosage: DAY 1 OF EACH 21-DAY CYCLE USING THE CALVERT FORMULA WITH A TARGET AUC = 5 MILLIGRAMS PER MILLILITER
     Route: 042
     Dates: start: 20180206
  16. CARBOPLATIN. [Suspect]
     Active Substance: CARBOPLATIN
     Dosage: DAY 1 OF EACH 21-DAY CYCLE USING THE CALVERT FORMULA WITH A TARGET AUC = 5 MILLIGRAMS PER MILLILITER
     Route: 065
     Dates: start: 20180320
  17. HYDROCHLOROTHIAZIDE. [Concomitant]
     Active Substance: HYDROCHLOROTHIAZIDE
     Route: 048
     Dates: start: 20180528
  18. BISOPROLOL [Concomitant]
     Active Substance: BISOPROLOL
     Route: 048
     Dates: start: 20171220, end: 20180208
  19. METOCLOPRAMIDE. [Concomitant]
     Active Substance: METOCLOPRAMIDE
     Route: 042
     Dates: start: 20180206, end: 20180208
  20. PARACETAMOL [Concomitant]
     Active Substance: ACETAMINOPHEN
     Route: 048
     Dates: start: 20180205
  21. BLINDED TRILACICLIB [Suspect]
     Active Substance: TRILACICLIB
     Indication: SMALL CELL LUNG CANCER
     Route: 042
     Dates: start: 20180206
  22. ALLOPURINOL. [Concomitant]
     Active Substance: ALLOPURINOL
     Route: 048
     Dates: start: 20180206, end: 20180212
  23. ALLOPURINOL. [Concomitant]
     Active Substance: ALLOPURINOL
     Route: 048
     Dates: start: 20180130, end: 20180205
  24. ENALAPRIL [Concomitant]
     Active Substance: ENALAPRIL
     Route: 048
     Dates: start: 20180525, end: 20180525
  25. BLINDED TRILACICLIB [Suspect]
     Active Substance: TRILACICLIB
     Indication: BONE MARROW FAILURE
     Route: 042
     Dates: start: 20180413
  26. DIHYDROCODEINE TARTRATE [Concomitant]
     Active Substance: DIHYDROCODEINE BITARTRATE
     Route: 048
     Dates: start: 20180130
  27. BISOPROLOL [Concomitant]
     Active Substance: BISOPROLOL
     Route: 048
     Dates: start: 20180209
  28. DICLOFENACUM [Concomitant]
     Route: 048
     Dates: start: 20180216

REACTIONS (1)
  - Angioedema [Recovered/Resolved]

NARRATIVE: CASE EVENT DATE: 20180526
